FAERS Safety Report 20566420 (Version 1)
Quarter: 2022Q1

REPORT INFORMATION
  Report Type: Spontaneous
  Country: DE (occurrence: DE)
  Receive Date: 20220308
  Receipt Date: 20220308
  Transmission Date: 20220423
  Serious: Yes (Hospitalization)
  Sender: FDA-Public Use
  Company Number: DE-EMA-DD-20220127-z4x8q8-104725

PATIENT
  Age: 60 Year
  Sex: Male

DRUGS (2)
  1. ISOPTIN [Suspect]
     Active Substance: VERAPAMIL HYDROCHLORIDE
     Indication: Essential hypertension
     Dosage: UNK
     Route: 065
     Dates: start: 2001
  2. HYDROCHLOROTHIAZIDE\VALSARTAN [Suspect]
     Active Substance: HYDROCHLOROTHIAZIDE\VALSARTAN
     Indication: Essential hypertension
     Dosage: UNK
     Dates: start: 2001

REACTIONS (1)
  - Photodermatosis [Not Recovered/Not Resolved]

NARRATIVE: CASE EVENT DATE: 20010101
